FAERS Safety Report 9861419 (Version 3)
Quarter: 2014Q3

REPORT INFORMATION
  Report Type: Report from Study
  Country: AR (occurrence: AR)
  Receive Date: 20140203
  Receipt Date: 20140919
  Transmission Date: 20150326
  Serious: Yes (Other)
  Sender: FDA-Public Use
  Company Number: AR-ROCHE-1339806

PATIENT
  Age: 73 Year
  Sex: Female

DRUGS (1)
  1. RANIBIZUMAB [Suspect]
     Active Substance: RANIBIZUMAB
     Indication: MACULOPATHY
     Route: 050

REACTIONS (9)
  - Night blindness [Unknown]
  - Nervousness [Unknown]
  - Eye swelling [Recovering/Resolving]
  - Pain [Recovering/Resolving]
  - Road traffic accident [Unknown]
  - Blindness unilateral [Recovering/Resolving]
  - Injection site pain [Recovering/Resolving]
  - Visual acuity reduced [Recovering/Resolving]
  - Visual impairment [Recovered/Resolved]
